FAERS Safety Report 24031094 (Version 1)
Quarter: 2024Q2

REPORT INFORMATION
  Report Type: Other
  Country: GB (occurrence: GB)
  Receive Date: 20240628
  Receipt Date: 20240628
  Transmission Date: 20240715
  Serious: Yes (Other)
  Sender: FDA-Public Use
  Company Number: GB-Zhejiang Yongtai pharmaceuticals Co..,Ltd.-2158666

PATIENT
  Age: 37 Year
  Sex: Female

DRUGS (4)
  1. GABAPENTIN [Suspect]
     Active Substance: GABAPENTIN
     Indication: Complex regional pain syndrome
     Route: 048
  2. KETAMINE [Suspect]
     Active Substance: KETAMINE
     Route: 048
  3. KETAMINE [Concomitant]
     Active Substance: KETAMINE
     Route: 065
  4. AMITRIPTYLINE HYDROCHLORIDE [Concomitant]
     Active Substance: AMITRIPTYLINE HYDROCHLORIDE
     Route: 065

REACTIONS (3)
  - Arrhythmia [Unknown]
  - Drug ineffective for unapproved indication [Unknown]
  - Tachycardia [Unknown]
